FAERS Safety Report 6020251-2 (Version None)
Quarter: 2008Q4

REPORT INFORMATION
  Report Type: 
  Country: None (occurrence: None)
  Receive Date: 20081226
  Receipt Date: 20081216
  Transmission Date: 20090506
  Serious: Yes (Hospitalization, Other)
  Sender: FDA-Public Use
  Company Number: PHEH2008US11128

PATIENT
  Sex: Female

DRUGS (4)
  1. ZOMETA [Suspect]
     Indication: MULTIPLE MYELOMA
     Dosage: UNK
     Dates: end: 20081101
  2. REVLIMID [Suspect]
     Indication: MULTIPLE MYELOMA
     Dosage: 15 MG, QD
     Route: 048
     Dates: start: 20070406, end: 20080901
  3. REVLIMID [Suspect]
     Dosage: 15 MG, QD
     Dates: start: 20081017
  4. DEXAMETHASONE ^BELMAC^ [Concomitant]

REACTIONS (5)
  - BONE DISORDER [None]
  - BRONCHITIS [None]
  - DISORIENTATION [None]
  - OSTEONECROSIS [None]
  - PNEUMONIA [None]
